FAERS Safety Report 6505324-X (Version None)
Quarter: 2009Q4

REPORT INFORMATION
  Report Type: 
  Country: None (occurrence: None)
  Receive Date: 20091218
  Receipt Date: 20091210
  Transmission Date: 20100525
  Serious: Yes (Other)
  Sender: FDA-Public Use
  Company Number: US-JNJFOC-20091203898

PATIENT
  Sex: Male
  Weight: 149.69 kg

DRUGS (5)
  1. SANDOZ FENTANYL TRANSDERMAL SYSTEM [Suspect]
     Indication: PAIN IN EXTREMITY
     Dosage: 100UG/HR+100UG/HR=200UG/HR
     Route: 062
     Dates: start: 20080101
  2. SANDOZ FENTANYL TRANSDERMAL SYSTEM [Suspect]
     Indication: BACK PAIN
     Dosage: 100UG/HR+100UG/HR=200UG/HR
     Route: 062
     Dates: start: 20080101
  3. MOTRIN [Concomitant]
     Indication: INFLAMMATION
     Route: 048
  4. MORPHINE [Concomitant]
     Indication: PAIN IN EXTREMITY
     Route: 048
  5. MORPHINE [Concomitant]
     Indication: BACK PAIN
     Route: 048

REACTIONS (6)
  - BACK PAIN [None]
  - DIABETES MELLITUS [None]
  - HYPOAESTHESIA [None]
  - PAIN IN EXTREMITY [None]
  - PRODUCT ADHESION ISSUE [None]
  - WRONG TECHNIQUE IN DRUG USAGE PROCESS [None]
